FAERS Safety Report 15265680 (Version 1)
Quarter: 2018Q3

REPORT INFORMATION
  Report Type: Spontaneous
  Country: US (occurrence: US)
  Receive Date: 20180724
  Receipt Date: 20180724
  Transmission Date: 20181010
  Serious: Yes (Life-Threatening, Disabling)
  Sender: FDA-Public Use
  Company Number: None

PATIENT
  Age: 63 Year
  Sex: Female
  Weight: 136.35 kg

DRUGS (30)
  1. GABAPENTIN. [Concomitant]
     Active Substance: GABAPENTIN
  2. OXYBUTININ [Concomitant]
     Active Substance: OXYBUTYNIN
  3. FLONASE [Concomitant]
     Active Substance: FLUTICASONE PROPIONATE
  4. BREO ELLIPTA [Concomitant]
     Active Substance: FLUTICASONE FUROATE\VILANTEROL TRIFENATATE
  5. CALCIUM CITRATE [Concomitant]
     Active Substance: CALCIUM CITRATE
  6. MAGNESIUM CITRATE. [Concomitant]
     Active Substance: MAGNESIUM CITRATE
  7. MELATONIN [Concomitant]
     Active Substance: MELATONIN
  8. MVI [Concomitant]
     Active Substance: VITAMINS
  9. RED YEAST RICE [Concomitant]
     Active Substance: DIETARY SUPPLEMENT
  10. XOLAIR [Suspect]
     Active Substance: OMALIZUMAB
     Indication: ASTHMA
     Dosage: ?          QUANTITY:2 INJECTION(S);OTHER FREQUENCY:MONTHLY;?
     Route: 058
     Dates: start: 20180703, end: 20180703
  11. ASTELIN [Concomitant]
     Active Substance: AZELASTINE HYDROCHLORIDE
  12. LASIX [Concomitant]
     Active Substance: FUROSEMIDE
  13. B?50 COMPLEX [Concomitant]
  14. ALBUTERAL [Concomitant]
     Active Substance: ALBUTEROL
  15. GARLIC. [Concomitant]
     Active Substance: GARLIC
  16. ALPHA LIPOIC ACID [Concomitant]
     Active Substance: .ALPHA.-LIPOIC ACID
  17. XOLAIR [Suspect]
     Active Substance: OMALIZUMAB
     Indication: HYPERSENSITIVITY
     Dosage: ?          QUANTITY:2 INJECTION(S);OTHER FREQUENCY:MONTHLY;?
     Route: 058
     Dates: start: 20180703, end: 20180703
  18. LEVOTHYROXIN [Concomitant]
     Active Substance: LEVOTHYROXINE
  19. SINGULAIR [Concomitant]
     Active Substance: MONTELUKAST SODIUM
  20. PARSLEY. [Concomitant]
     Active Substance: PARSLEY
  21. VITAMIN D [Concomitant]
     Active Substance: CHOLECALCIFEROL
  22. VITAMIN K [Concomitant]
     Active Substance: PHYTONADIONE
  23. GINKO BALOBA [Concomitant]
  24. PREDNISONE. [Concomitant]
     Active Substance: PREDNISONE
  25. FLAXSEED [Concomitant]
     Active Substance: FLAX SEED
  26. IMURAN [Concomitant]
     Active Substance: AZATHIOPRINE
  27. VENTOLIN [Concomitant]
     Active Substance: ALBUTEROL SULFATE
  28. COENZYME Q10 [Concomitant]
     Active Substance: UBIDECARENONE
  29. VITAMIN E [Concomitant]
     Active Substance: .ALPHA.-TOCOPHEROL
  30. TYLENOL [Concomitant]
     Active Substance: ACETAMINOPHEN

REACTIONS (12)
  - Headache [None]
  - Wheezing [None]
  - Asthenia [None]
  - Anxiety [None]
  - Dysphonia [None]
  - Dyspnoea [None]
  - Dyspnoea exertional [None]
  - Malaise [None]
  - Disturbance in attention [None]
  - Sleep disorder [None]
  - Chest pain [None]
  - Myalgia [None]

NARRATIVE: CASE EVENT DATE: 20180723
